FAERS Safety Report 13358766 (Version 5)
Quarter: 2017Q3

REPORT INFORMATION
  Report Type: Spontaneous
  Country: KR (occurrence: KR)
  Receive Date: 20170322
  Receipt Date: 20170714
  Transmission Date: 20171127
  Serious: No
  Sender: FDA-Public Use
  Company Number: KR-009507513-1703KOR008857

PATIENT
  Age: 69 Year
  Sex: Male
  Weight: 55.5 kg

DRUGS (36)
  1. EMEND (FOSAPREPITANT DIMEGLUMINE) [Suspect]
     Active Substance: FOSAPREPITANT DIMEGLUMINE
     Dosage: 150 MG, ONCE
     Route: 042
     Dates: start: 20170104, end: 20170104
  2. TS-1 [Concomitant]
     Active Substance: GIMERACIL\OTERACIL\TEGAFUR
     Dosage: 3 CAPSULES, BID. CYCLE 1
     Route: 048
     Dates: start: 20161014, end: 20161028
  3. TS-1 [Concomitant]
     Active Substance: GIMERACIL\OTERACIL\TEGAFUR
     Dosage: 3 CAPSULES, BID. CYCLE 2
     Route: 048
     Dates: start: 20161103, end: 20161117
  4. CISPLAN [Concomitant]
     Active Substance: CISPLATIN
     Dosage: 97.2 MG, QD
     Route: 051
     Dates: start: 20161215, end: 20161215
  5. DEXAMETHASONE. [Concomitant]
     Active Substance: DEXAMETHASONE
     Dosage: 8 MG, QD
     Route: 048
     Dates: start: 20161015, end: 20161017
  6. DEXAMETHASONE. [Concomitant]
     Active Substance: DEXAMETHASONE
     Dosage: 8 MG, QD
     Route: 048
     Dates: start: 20161104, end: 20161106
  7. CISPLAN [Concomitant]
     Active Substance: CISPLATIN
     Dosage: 97.2 MG, QD
     Route: 051
     Dates: start: 20161103, end: 20161103
  8. DEXAMETHASONE. [Concomitant]
     Active Substance: DEXAMETHASONE
     Dosage: 12 MG, QD. ROUTE: INF
     Route: 051
     Dates: start: 20161014, end: 20161014
  9. ALOXI [Concomitant]
     Active Substance: PALONOSETRON HYDROCHLORIDE
     Indication: PROPHYLAXIS OF NAUSEA AND VOMITING
     Dosage: 0.25 MG, QD. ROUTE: INF
     Route: 051
     Dates: start: 20170104, end: 20170104
  10. EMEND (FOSAPREPITANT DIMEGLUMINE) [Suspect]
     Active Substance: FOSAPREPITANT DIMEGLUMINE
     Dosage: 150 MG, ONCE
     Route: 042
     Dates: start: 20161103, end: 20161103
  11. CISPLAN [Concomitant]
     Active Substance: CISPLATIN
     Dosage: 98.778 MG, QD. CYCLE 6
     Route: 051
     Dates: start: 20170125, end: 20170208
  12. DEXAMETHASONE. [Concomitant]
     Active Substance: DEXAMETHASONE
     Dosage: 12 MG, QD. ROUTE: INF
     Route: 051
     Dates: start: 20161215, end: 20161215
  13. ALOXI [Concomitant]
     Active Substance: PALONOSETRON HYDROCHLORIDE
     Dosage: 0.25 MG, QD. ROUTE: INF
     Route: 051
     Dates: start: 20170125, end: 20170125
  14. ALOXI [Concomitant]
     Active Substance: PALONOSETRON HYDROCHLORIDE
     Dosage: 0.25 MG, QD. ROUTE: INF
     Route: 051
     Dates: start: 20161123, end: 20161123
  15. EMEND (FOSAPREPITANT DIMEGLUMINE) [Suspect]
     Active Substance: FOSAPREPITANT DIMEGLUMINE
     Indication: PROPHYLAXIS OF NAUSEA AND VOMITING
     Dosage: 150 MG, ONCE
     Route: 042
     Dates: start: 20161014, end: 20161014
  16. EMEND (FOSAPREPITANT DIMEGLUMINE) [Suspect]
     Active Substance: FOSAPREPITANT DIMEGLUMINE
     Dosage: 150 MG, ONCE
     Route: 042
     Dates: start: 20161123, end: 20161123
  17. EMEND (FOSAPREPITANT DIMEGLUMINE) [Suspect]
     Active Substance: FOSAPREPITANT DIMEGLUMINE
     Dosage: 150 MG, ONCE
     Route: 042
     Dates: start: 20161215, end: 20161215
  18. TS-1 [Concomitant]
     Active Substance: GIMERACIL\OTERACIL\TEGAFUR
     Dosage: 3 CAPSULES, BID. CYCLE 3
     Route: 048
     Dates: start: 20161123, end: 20161207
  19. DEXAMETHASONE. [Concomitant]
     Active Substance: DEXAMETHASONE
     Dosage: 12 MG, QD. ROUTE: INF
     Route: 051
     Dates: start: 20170125, end: 20170125
  20. DEXAMETHASONE. [Concomitant]
     Active Substance: DEXAMETHASONE
     Dosage: 12 MG, QD. ROUTE: INF
     Route: 051
     Dates: start: 20161123, end: 20161123
  21. DEXAMETHASONE. [Concomitant]
     Active Substance: DEXAMETHASONE
     Indication: PROPHYLAXIS OF NAUSEA AND VOMITING
     Dosage: 8 MG, QD
     Route: 048
     Dates: start: 20161216, end: 20161218
  22. EMEND (FOSAPREPITANT DIMEGLUMINE) [Suspect]
     Active Substance: FOSAPREPITANT DIMEGLUMINE
     Dosage: 150 MG, ONCE
     Route: 042
     Dates: start: 20170125, end: 20170125
  23. CISPLAN [Concomitant]
     Active Substance: CISPLATIN
     Indication: GASTRIC CANCER
     Dosage: 95.748 MG, QD. CYCLE 5
     Route: 051
     Dates: start: 20170104, end: 20170104
  24. TS-1 [Concomitant]
     Active Substance: GIMERACIL\OTERACIL\TEGAFUR
     Indication: GASTRIC CANCER
     Dosage: 3 CAPSULES, BID. CYCLE 5
     Route: 048
     Dates: start: 20170104, end: 20170118
  25. TS-1 [Concomitant]
     Active Substance: GIMERACIL\OTERACIL\TEGAFUR
     Dosage: 3 CAPSULES, BID. CYCLE 4
     Route: 048
     Dates: start: 20161215, end: 20161229
  26. CISPLAN [Concomitant]
     Active Substance: CISPLATIN
     Dosage: 97.2 MG, QD
     Route: 051
     Dates: start: 20161014, end: 20161014
  27. DEXAMETHASONE. [Concomitant]
     Active Substance: DEXAMETHASONE
     Dosage: 12 MG, QD. ROUTE: INF
     Route: 051
     Dates: start: 20161103, end: 20161103
  28. DEXAMETHASONE. [Concomitant]
     Active Substance: DEXAMETHASONE
     Dosage: 8 MG, QD
     Route: 048
     Dates: start: 20170126, end: 20170128
  29. ALOXI [Concomitant]
     Active Substance: PALONOSETRON HYDROCHLORIDE
     Dosage: 0.25 MG, QD. ROUTE: INF
     Route: 051
     Dates: start: 20161103, end: 20161103
  30. ALOXI [Concomitant]
     Active Substance: PALONOSETRON HYDROCHLORIDE
     Dosage: 0.25 MG, QD. ROUTE: INF
     Route: 051
     Dates: start: 20161215, end: 20161215
  31. TS-1 [Concomitant]
     Active Substance: GIMERACIL\OTERACIL\TEGAFUR
     Dosage: 3 CAPSULES, BID. CYCLE 6
     Route: 048
     Dates: start: 20170125, end: 20170125
  32. CISPLAN [Concomitant]
     Active Substance: CISPLATIN
     Dosage: 97.2 MG, QD
     Route: 051
     Dates: start: 20161123, end: 20161123
  33. DEXAMETHASONE. [Concomitant]
     Active Substance: DEXAMETHASONE
     Indication: PROPHYLAXIS OF NAUSEA AND VOMITING
     Dosage: 12 MG, QD. ROUTE: INF
     Route: 051
     Dates: start: 20170104, end: 20170104
  34. DEXAMETHASONE. [Concomitant]
     Active Substance: DEXAMETHASONE
     Dosage: 8 MG, QD
     Route: 048
     Dates: start: 20170105, end: 20170107
  35. DEXAMETHASONE. [Concomitant]
     Active Substance: DEXAMETHASONE
     Dosage: 8 MG, QD
     Route: 048
     Dates: start: 20161124, end: 20161126
  36. ALOXI [Concomitant]
     Active Substance: PALONOSETRON HYDROCHLORIDE
     Dosage: 0.25 MG, QD. ROUTE: INF
     Route: 051
     Dates: start: 20161014, end: 20161014

REACTIONS (1)
  - Anaemia [Recovered/Resolved]

NARRATIVE: CASE EVENT DATE: 20170104
